FAERS Safety Report 10155779 (Version 1)
Quarter: 2014Q2

REPORT INFORMATION
  Report Type: Spontaneous
  Country: US (occurrence: US)
  Receive Date: 20140506
  Receipt Date: 20140506
  Transmission Date: 20141212
  Serious: Yes (Other)
  Sender: FDA-Public Use
  Company Number: US-BAYER-2014-063983

PATIENT
  Age: 22 Year
  Sex: Male
  Weight: 93 kg

DRUGS (1)
  1. BRONKAID [Suspect]
     Indication: ASTHMA
     Dosage: 1 DF, ONCE
     Route: 048
     Dates: start: 20140427, end: 20140427

REACTIONS (2)
  - Asthma [None]
  - Cough [None]
